FAERS Safety Report 12686850 (Version 2)
Quarter: 2019Q4

REPORT INFORMATION
  Report Type: Spontaneous
  Country: US (occurrence: US)
  Receive Date: 20160825
  Receipt Date: 20191016
  Transmission Date: 20200122
  Serious: No
  Sender: FDA-Public Use
  Company Number: US-JAZZ-2016-US-007223

PATIENT
  Sex: Female

DRUGS (17)
  1. VITAMIN B12 [Concomitant]
     Active Substance: CYANOCOBALAMIN
  2. LUNESTA [Concomitant]
     Active Substance: ESZOPICLONE
  3. CLONAZEPAM. [Concomitant]
     Active Substance: CLONAZEPAM
  4. TEMAZEPAM. [Concomitant]
     Active Substance: TEMAZEPAM
  5. XYREM [Suspect]
     Active Substance: SODIUM OXYBATE
     Dosage: 6 G, BID
     Route: 048
     Dates: start: 201506, end: 201508
  6. METFORMIN [Concomitant]
     Active Substance: METFORMIN HYDROCHLORIDE
  7. DEPAKOTE [Concomitant]
     Active Substance: DIVALPROEX SODIUM
  8. GABITRIL [Concomitant]
     Active Substance: TIAGABINE HYDROCHLORIDE
  9. XYREM [Suspect]
     Active Substance: SODIUM OXYBATE
     Indication: NARCOLEPSY
     Dosage: 4.5 G, BID
     Route: 048
     Dates: start: 201311, end: 201506
  10. AMBIEN [Concomitant]
     Active Substance: ZOLPIDEM TARTRATE
  11. SYNTHROID [Concomitant]
     Active Substance: LEVOTHYROXINE SODIUM
  12. LAMICTAL [Concomitant]
     Active Substance: LAMOTRIGINE
  13. CARISOPRODOL. [Concomitant]
     Active Substance: CARISOPRODOL
  14. XYREM [Suspect]
     Active Substance: SODIUM OXYBATE
     Dosage: 4.5 G, BID
     Route: 048
     Dates: start: 201508
  15. MODAFINIL. [Concomitant]
     Active Substance: MODAFINIL
  16. LO LOESTRIN FE [Concomitant]
     Active Substance: ETHINYL ESTRADIOL\NORETHINDRONE ACETATE
  17. VIIBRYD [Concomitant]
     Active Substance: VILAZODONE HYDROCHLORIDE

REACTIONS (2)
  - Glossodynia [Not Recovered/Not Resolved]
  - Blood potassium decreased [Recovered/Resolved]

NARRATIVE: CASE EVENT DATE: 2013
